FAERS Safety Report 25237871 (Version 1)
Quarter: 2025Q2

REPORT INFORMATION
  Report Type: Spontaneous
  Country: US (occurrence: US)
  Receive Date: 20250425
  Receipt Date: 20250425
  Transmission Date: 20250716
  Serious: No
  Sender: TEVA
  Company Number: US-TEVA-VS-3321748

PATIENT
  Age: 29 Year
  Sex: Male

DRUGS (1)
  1. TRAZODONE HYDROCHLORIDE [Suspect]
     Active Substance: TRAZODONE HYDROCHLORIDE
     Indication: Product used for unknown indication
     Route: 048
     Dates: start: 2025

REACTIONS (3)
  - Diarrhoea [Unknown]
  - Contraindicated product prescribed [Unknown]
  - Exposure to allergen [Unknown]

NARRATIVE: CASE EVENT DATE: 20250101
